FAERS Safety Report 4412806-3 (Version None)
Quarter: 2004Q3

REPORT INFORMATION
  Report Type: 
  Country: None (occurrence: None)
  Receive Date: 20040727
  Receipt Date: 20040727
  Transmission Date: 20050211
  Serious: Yes (Death)
  Sender: FDA-Public Use
  Company Number: 2004-03173

PATIENT
  Age: 56 Year
  Sex: Female

DRUGS (2)
  1. FLUOXETINE [Suspect]
     Indication: DEPRESSION
     Dosage: SEE IMAGE
     Route: 048
  2. DURAGESIC [Suspect]
     Indication: PAIN
     Dosage: TRANSDERMAL
     Route: 062

REACTIONS (3)
  - ACCIDENTAL OVERDOSE [None]
  - DRUG INTERACTION [None]
  - DRUG TOXICITY [None]
